FAERS Safety Report 24746596 (Version 2)
Quarter: 2024Q4

REPORT INFORMATION
  Report Type: Spontaneous
  Country: CZ (occurrence: CZ)
  Receive Date: 20241218
  Receipt Date: 20241223
  Transmission Date: 20250114
  Serious: Yes (Other)
  Sender: AUROBINDO
  Company Number: CZ-MYLANLABS-2024M1106166

PATIENT
  Age: 81 Year
  Sex: Female

DRUGS (8)
  1. ALPRAZOLAM [Suspect]
     Active Substance: ALPRAZOLAM
     Indication: Pneumonia
     Dosage: 2 MILLIGRAM, ONCE A DAY (1 MILLIGRAM, BID)
     Route: 065
  2. AMITRIPTYLINE [Suspect]
     Active Substance: AMITRIPTYLINE
     Indication: Pneumonia
     Dosage: 25 MILLIGRAM, ONCE A DAY
     Route: 065
  3. CLONAZEPAM [Suspect]
     Active Substance: CLONAZEPAM
     Indication: Pneumonia
     Dosage: 0.25 MILLIGRAM
     Route: 065
  4. CLARITHROMYCIN [Suspect]
     Active Substance: CLARITHROMYCIN
     Indication: Pneumonia
     Dosage: UNK
     Route: 048
  5. NORTRIPTYLINE [Suspect]
     Active Substance: NORTRIPTYLINE
     Indication: Pneumonia
     Dosage: UNK UNK, ONCE A DAY
     Route: 065
  6. TRAZODONE [Suspect]
     Active Substance: TRAZODONE HYDROCHLORIDE
     Indication: Pneumonia
     Dosage: 150 MILLIGRAM, ONCE A DAY
     Route: 065
  7. ZIPRASIDONE [Suspect]
     Active Substance: ZIPRASIDONE
     Indication: Pneumonia
     Dosage: 80 MILLIGRAM, ONCE A DAY
     Route: 065
  8. AMPICILLIN [Concomitant]
     Active Substance: AMPICILLIN
     Indication: Pneumonia
     Dosage: UNK
     Route: 042

REACTIONS (6)
  - Electrocardiogram QT prolonged [Recovered/Resolved]
  - Sedation [Recovered/Resolved]
  - Drug interaction [Unknown]
  - Tachyphylaxis [Unknown]
  - Disturbance in attention [Recovering/Resolving]
  - Product use issue [Recovered/Resolved]
